FAERS Safety Report 25539308 (Version 2)
Quarter: 2025Q3

REPORT INFORMATION
  Report Type: Report from Study
  Country: EU (occurrence: EU)
  Receive Date: 20250710
  Receipt Date: 20250715
  Transmission Date: 20251021
  Serious: Yes (Hospitalization)
  Sender: GILEAD
  Company Number: EU-GILEAD-2025-0718054

PATIENT
  Sex: Female

DRUGS (1)
  1. AXICABTAGENE CILOLEUCEL [Suspect]
     Active Substance: AXICABTAGENE CILOLEUCEL
     Indication: Non-Hodgkin^s lymphoma
     Route: 065

REACTIONS (6)
  - Platelet count decreased [Unknown]
  - Blood potassium decreased [Unknown]
  - Haemoglobin decreased [Unknown]
  - Body temperature abnormal [Unknown]
  - Decubitus ulcer [Unknown]
  - Infection [Unknown]
